FAERS Safety Report 5065737-2 (Version None)
Quarter: 2006Q3

REPORT INFORMATION
  Report Type: 
  Country: None (occurrence: None)
  Receive Date: 20060731
  Receipt Date: 20050705
  Transmission Date: 20061208
  Serious: Yes (Hospitalization)
  Sender: FDA-Public Use
  Company Number: FR-ROCHE-409882

PATIENT
  Age: 44 Year
  Sex: Male
  Weight: 72 kg

DRUGS (5)
  1. INVIRASE [Suspect]
     Route: 048
  2. VIREAD [Suspect]
     Route: 048
  3. KALETRA [Suspect]
     Route: 048
  4. NORVIR [Suspect]
     Route: 048
  5. BACTRIM [Concomitant]
     Route: 048

REACTIONS (4)
  - ANGINA UNSTABLE [None]
  - ARTERIOSCLEROSIS CORONARY ARTERY [None]
  - CORONARY ARTERY STENOSIS [None]
  - WEIGHT INCREASED [None]
